FAERS Safety Report 20045716 (Version 1)
Quarter: 2021Q4

REPORT INFORMATION
  Report Type: Spontaneous
  Country: US (occurrence: None)
  Receive Date: 20211105
  Receipt Date: 20211105
  Transmission Date: 20220303
  Serious: Yes (Other)
  Sender: FDA-Public Use
  Company Number: None

PATIENT
  Age: 43 Year
  Sex: Male
  Weight: 194.59 kg

DRUGS (1)
  1. CELECOXIB [Suspect]
     Active Substance: CELECOXIB
     Indication: Osteoarthritis
     Dosage: OTHER QUANTITY : 1 DF DOSAGE FORM;?FREQUENCY : DAILY;?
     Route: 048
     Dates: start: 20110405, end: 20170111

REACTIONS (1)
  - Drug ineffective [None]

NARRATIVE: CASE EVENT DATE: 20211102
